FAERS Safety Report 6283766-8 (Version None)
Quarter: 2009Q3

REPORT INFORMATION
  Report Type: 
  Country: None (occurrence: None)
  Receive Date: 20090724
  Receipt Date: 20070621
  Transmission Date: 20100115
  Serious: Yes (Other)
  Sender: FDA-Public Use
  Company Number: US-ASTRAZENECA-2006UW23756

PATIENT
  Age: 17298 Day
  Sex: Male
  Weight: 131.5 kg

DRUGS (14)
  1. SEROQUEL [Suspect]
     Dosage: 100 MG- 300 MG
     Route: 048
     Dates: start: 20041118
  2. HYDROCHLOROTHIAZIDE [Concomitant]
  3. LORAZEPAM [Concomitant]
  4. GLUCOPHAGE [Concomitant]
  5. HALDOL [Concomitant]
  6. ALBUTEROL [Concomitant]
  7. GEODON [Concomitant]
  8. ABILIFY [Concomitant]
  9. ACETAMINOPHEN [Concomitant]
  10. ACCUPRIL [Concomitant]
  11. ZYPREXA [Concomitant]
  12. DEPAKOTE [Concomitant]
  13. DIGOXIN [Concomitant]
  14. NEXIUM [Concomitant]

REACTIONS (5)
  - DIABETES MELLITUS [None]
  - DIABETIC COMA [None]
  - DIABETIC FOOT [None]
  - HYPERGLYCAEMIA [None]
  - KETOACIDOSIS [None]
